FAERS Safety Report 5100377-8 (Version None)
Quarter: 2006Q3

REPORT INFORMATION
  Report Type: 
  Country: None (occurrence: None)
  Receive Date: 20060731
  Receipt Date: 20060531
  Transmission Date: 20061208
  Serious: No
  Sender: FDA-Public Use
  Company Number: 2006PV014750

PATIENT
  Age: 56 Year
  Sex: Male
  Weight: 111.1313 kg

DRUGS (4)
  1. BYETTA [Suspect]
     Indication: DIABETES MELLITUS NON-INSULIN-DEPENDENT
     Dosage: SEE IMAGE
     Route: 058
     Dates: start: 20060522, end: 20060530
  2. GLUCOPHAGE [Concomitant]
  3. AVANDIA [Concomitant]
  4. PRANDIN [Concomitant]

REACTIONS (6)
  - BLOOD GLUCOSE DECREASED [None]
  - DIZZINESS [None]
  - HYPERHIDROSIS [None]
  - HYPOAESTHESIA ORAL [None]
  - NAUSEA [None]
  - RETCHING [None]
